FAERS Safety Report 6328774-3 (Version None)
Quarter: 2009Q3

REPORT INFORMATION
  Report Type: 
  Country: None (occurrence: None)
  Receive Date: 20090825
  Receipt Date: 20090825
  Transmission Date: 20100115
  Serious: Yes (Hospitalization)
  Sender: FDA-Public Use
  Company Number: None

PATIENT
  Age: 44 Year
  Sex: Female

DRUGS (10)
  1. INFLIXIMAB 100MG CENTOCOR [Suspect]
     Indication: COLITIS ULCERATIVE
     Dosage: 400MG ONCE IV
     Route: 042
     Dates: start: 20080703, end: 20080703
  2. MESALAMINE [Concomitant]
  3. ZOLPIDIEM [Concomitant]
  4. SPIRONOLACTONE [Concomitant]
  5. LOESTRIN 1.5/30 [Concomitant]
  6. CITALOPRAM HYDROBROMIDE [Concomitant]
  7. ACYCLOVIR [Concomitant]
  8. ALPRAZOLAM ER [Concomitant]
  9. DIPHENOXOLATE/ATROPINE [Concomitant]
  10. FOLIC ACID [Concomitant]

REACTIONS (3)
  - ARTHRALGIA [None]
  - DYSPNOEA [None]
  - RASH PRURITIC [None]
